FAERS Safety Report 24364267 (Version 1)
Quarter: 2024Q3

REPORT INFORMATION
  Report Type: Report from Study
  Country: US (occurrence: US)
  Receive Date: 20240925
  Receipt Date: 20240925
  Transmission Date: 20241017
  Serious: Yes (Other)
  Sender: ABBVIE
  Company Number: US-ABBVIE-5933499

PATIENT
  Age: 59 Year
  Sex: Female

DRUGS (1)
  1. VENCLEXTA [Suspect]
     Active Substance: VENETOCLAX
     Indication: Pulmonary blastomycosis
     Route: 048
     Dates: start: 202406

REACTIONS (2)
  - Lumbar puncture [Unknown]
  - Chemotherapy [Unknown]

NARRATIVE: CASE EVENT DATE: 20240919
